FAERS Safety Report 4368099-9 (Version None)
Quarter: 2004Q2

REPORT INFORMATION
  Report Type: 
  Country: None (occurrence: None)
  Receive Date: 20040602
  Receipt Date: 20040520
  Transmission Date: 20050107
  Serious: Yes (Hospitalization)
  Sender: FDA-Public Use
  Company Number: US-AMGEN-US077341

PATIENT
  Sex: Male
  Weight: 27.8 kg

DRUGS (7)
  1. ENBREL [Suspect]
     Indication: DERMATOMYOSITIS
     Route: 058
     Dates: start: 20030509, end: 20031202
  2. ENBREL [Suspect]
     Route: 058
     Dates: start: 20040202
  3. IMMUNE GLOBULIN INTRAVENOUS (HUMAN) [Concomitant]
     Dates: start: 20030114, end: 20030801
  4. METHOTREXATE [Concomitant]
     Dates: start: 20030402
  5. LEUCOVORIN CALCIUM [Concomitant]
     Dates: start: 20030402
  6. SOLU-MEDROL [Concomitant]
     Dates: start: 20030101, end: 20030801
  7. PREDNISOLONE SODIUM PHOSPHATE [Concomitant]
     Dates: start: 20020115, end: 20031101

REACTIONS (1)
  - FIBROUS HISTIOCYTOMA [None]
